FAERS Safety Report 21922876 (Version 2)
Quarter: 2023Q1

REPORT INFORMATION
  Report Type: Spontaneous
  Country: NO (occurrence: NO)
  Receive Date: 20230128
  Receipt Date: 20230325
  Transmission Date: 20230417
  Serious: Yes (Disabling, Other)
  Sender: FDA-Public Use
  Company Number: NO-AMGEN-NORSP2023009927

PATIENT
  Age: 53 Year
  Sex: Female
  Weight: 50 kg

DRUGS (6)
  1. PROLIA [Suspect]
     Active Substance: DENOSUMAB
     Indication: Osteoporosis
     Dosage: 60 MILLIGRAM, Q6MO
     Route: 065
     Dates: start: 201601
  2. ACLASTA [Suspect]
     Active Substance: ZOLEDRONIC ACID
     Indication: Osteoporosis
     Dosage: 5 MILLIGRAM
     Route: 065
     Dates: start: 20150101, end: 20171231
  3. ALBUTEROL [Concomitant]
     Active Substance: ALBUTEROL
     Dosage: 5 MILLIGRAM PER MILLILITRE
  4. NORSPAN [Concomitant]
     Active Substance: BUPRENORPHINE
     Dosage: UNK
  5. ACLIDINIUM BROMIDE [Concomitant]
     Active Substance: ACLIDINIUM BROMIDE
     Dosage: 322 MICROGRAM
  6. FLUTICASONE PROPIONATE\FORMOTEROL FUMARATE [Concomitant]
     Active Substance: FLUTICASONE PROPIONATE\FORMOTEROL FUMARATE

REACTIONS (12)
  - Tooth loss [Recovering/Resolving]
  - Osteonecrosis of jaw [Unknown]
  - Mastication disorder [Not Recovered/Not Resolved]
  - Oral pain [Unknown]
  - Osteitis [Unknown]
  - Impaired healing [Unknown]
  - Discomfort [Unknown]
  - Pain in jaw [Unknown]
  - Emotional distress [Not Recovered/Not Resolved]
  - Dental prosthesis user [Not Recovered/Not Resolved]
  - Social problem [Not Recovered/Not Resolved]
  - Headache [Unknown]

NARRATIVE: CASE EVENT DATE: 20220101
